FAERS Safety Report 15679071 (Version 1)
Quarter: 2018Q4

REPORT INFORMATION
  Report Type: Spontaneous
  Country: DE (occurrence: DE)
  Receive Date: 20181203
  Receipt Date: 20181203
  Transmission Date: 20190205
  Serious: Yes (Life-Threatening, Hospitalization, Other)
  Sender: FDA-Public Use
  Company Number: DE-TEVA-2018-DE-981240

PATIENT
  Age: 74 Year
  Sex: Female
  Weight: 72 kg

DRUGS (7)
  1. NORSPAN [Concomitant]
     Active Substance: BUPRENORPHINE
     Route: 062
  2. OLMESARTAN 40/25 [Suspect]
     Active Substance: OLMESARTAN
     Indication: HYPERTENSION
     Dosage: 1 DOSAGE FORMS DAILY; DAILY DOSE: 1 DF DOSAGE FORM EVERY DAYS
     Route: 048
     Dates: start: 20170720, end: 20180523
  3. BISOPROLOL [Concomitant]
     Active Substance: BISOPROLOL
     Indication: HYPERTENSION
     Dosage: 5 MILLIGRAM DAILY; DAILY DOSE: 5 MG MILLGRAM(S) EVERY DAYS
     Route: 048
  4. TORASEMID CT 10MG [Concomitant]
     Route: 065
  5. OXAZEPAM AL 10 [Concomitant]
     Dosage: DAILY DOSE: 1 DF DOSAGE FORM EVERY AS NECESSARY
     Route: 065
  6. AMITRIPTYLIN DURA [Concomitant]
     Dosage: 1 DOSAGE FORMS DAILY; DAILY DOSE: 1 DF DOSAGE FORM EVERY DAYS
     Route: 065
  7. PANTOPRAZOL [Concomitant]
     Active Substance: PANTOPRAZOLE SODIUM
     Dosage: 20 MILLIGRAM DAILY; DAILY DOSE: 20 MG MILLGRAM(S) EVERY DAYS
     Route: 048

REACTIONS (8)
  - Enteritis [Recovering/Resolving]
  - Hypotension [Recovering/Resolving]
  - Cachexia [Recovering/Resolving]
  - Weight decreased [Unknown]
  - Dehydration [Recovering/Resolving]
  - Malabsorption [Recovering/Resolving]
  - Diarrhoea [Recovering/Resolving]
  - Nausea [Recovering/Resolving]

NARRATIVE: CASE EVENT DATE: 201803
